FAERS Safety Report 23425161 (Version 1)
Quarter: 2024Q1

REPORT INFORMATION
  Report Type: Report from Study
  Country: CA (occurrence: CA)
  Receive Date: 20240121
  Receipt Date: 20240121
  Transmission Date: 20240409
  Serious: Yes (Hospitalization, Other)
  Sender: FDA-Public Use
  Company Number: CA-ABBVIE-5597391

PATIENT
  Age: 34 Year
  Sex: Female

DRUGS (3)
  1. SKYRIZI [Suspect]
     Active Substance: RISANKIZUMAB-RZAA
     Indication: Crohn^s disease
     Dosage: TIME INTERVAL: TOTAL: 1ST INFUSION
     Route: 042
     Dates: start: 20230313, end: 20230313
  2. SKYRIZI [Suspect]
     Active Substance: RISANKIZUMAB-RZAA
     Indication: Crohn^s disease
     Dosage: TIME INTERVAL: TOTAL: 2ND INFUSION
     Route: 042
     Dates: start: 2023, end: 2023
  3. SKYRIZI [Suspect]
     Active Substance: RISANKIZUMAB-RZAA
     Indication: Crohn^s disease
     Dosage: TIME INTERVAL: TOTAL: 3RD INFUSION DOSE
     Route: 042
     Dates: start: 20230510, end: 20230510

REACTIONS (2)
  - Renal failure [Unknown]
  - Ileostomy [Unknown]

NARRATIVE: CASE EVENT DATE: 20231122
